FAERS Safety Report 7074819-5 (Version None)
Quarter: 2010Q4

REPORT INFORMATION
  Report Type: 
  Country: None (occurrence: None)
  Receive Date: 20101029
  Receipt Date: 20101015
  Transmission Date: 20110411
  Serious: Yes (Death)
  Sender: FDA-Public Use
  Company Number: BE-GENENTECH-308362

PATIENT

DRUGS (1)
  1. XOLAIR [Suspect]
     Dosage: UNK

REACTIONS (2)
  - ARTHRITIS [None]
  - DEATH [None]
